FAERS Safety Report 21194357 (Version 1)
Quarter: 2022Q3

REPORT INFORMATION
  Report Type: Spontaneous
  Country: US (occurrence: None)
  Receive Date: 20220809
  Receipt Date: 20220809
  Transmission Date: 20221027
  Serious: No
  Sender: FDA-Public Use
  Company Number: None

PATIENT
  Age: 73 Year
  Sex: Female
  Weight: 58.5 kg

DRUGS (5)
  1. OZEMPIC [Suspect]
     Active Substance: SEMAGLUTIDE
     Indication: Diabetes mellitus
  2. ATORVASTATIN [Concomitant]
     Active Substance: ATORVASTATIN
  3. glucophage 2000mg [Concomitant]
  4. teenasa recaally once a day [Concomitant]
  5. multi-vitamin and many other vitamins/supplements [Concomitant]

REACTIONS (5)
  - Nausea [None]
  - Dizziness [None]
  - Rectal haemorrhage [None]
  - Colitis [None]
  - Disease recurrence [None]

NARRATIVE: CASE EVENT DATE: 20220501
